FAERS Safety Report 20848663 (Version 1)
Quarter: 2022Q2

REPORT INFORMATION
  Report Type: Spontaneous
  Country: CN (occurrence: CN)
  Receive Date: 20220519
  Receipt Date: 20220519
  Transmission Date: 20220721
  Serious: Yes (Hospitalization, Other)
  Sender: FDA-Public Use
  Company Number: CN-PFIZER INC-202200697342

PATIENT
  Age: 63 Year
  Sex: Female
  Weight: 82 kg

DRUGS (5)
  1. METHYLPREDNISOLONE [Suspect]
     Active Substance: METHYLPREDNISOLONE
     Indication: Systemic lupus erythematosus
     Dosage: 44 MG
  2. METHYLPREDNISOLONE [Suspect]
     Active Substance: METHYLPREDNISOLONE
     Dosage: GRADUALLY REDUCED AND MAINTAINED AT A DOSE OF 4MG
  3. HYDROXYCHLOROQUINE SULFATE [Concomitant]
     Active Substance: HYDROXYCHLOROQUINE SULFATE
     Indication: Systemic lupus erythematosus
     Dosage: 400 MG
  4. MYCOPHENOLATE MOFETIL [Concomitant]
     Active Substance: MYCOPHENOLATE MOFETIL
     Dosage: 1 G
  5. CALCIUM [Concomitant]
     Active Substance: CALCIUM
     Indication: Supplementation therapy

REACTIONS (3)
  - Escherichia urinary tract infection [Recovering/Resolving]
  - Pyelonephritis [Recovering/Resolving]
  - Escherichia bacteraemia [Recovering/Resolving]

NARRATIVE: CASE EVENT DATE: 20191201
